FAERS Safety Report 21133247 (Version 5)
Quarter: 2022Q4

REPORT INFORMATION
  Report Type: Report from Study
  Country: PA (occurrence: PA)
  Receive Date: 20220726
  Receipt Date: 20221006
  Transmission Date: 20230113
  Serious: Yes (Other)
  Sender: FDA-Public Use
  Company Number: PA-NOVARTISPH-NVSC2022PA166374

PATIENT
  Age: 56 Year
  Sex: Female
  Weight: 53 kg

DRUGS (7)
  1. KISQALI [Suspect]
     Active Substance: RIBOCICLIB
     Indication: Breast cancer metastatic
     Dosage: 600 MG, QD (3 TABLETS)
     Route: 048
     Dates: start: 20220704
  2. KISQALI [Suspect]
     Active Substance: RIBOCICLIB
     Dosage: 600 MG, QD (3 TABLETS)
     Route: 048
     Dates: start: 202207
  3. KISQALI [Suspect]
     Active Substance: RIBOCICLIB
     Dosage: 600 MG, QD
     Route: 048
     Dates: end: 202209
  4. FULVESTRANT [Suspect]
     Active Substance: FULVESTRANT
     Indication: Hormone level abnormal
     Dosage: UNK
     Route: 065
  5. FULVESTRANT [Suspect]
     Active Substance: FULVESTRANT
     Dosage: UNK
     Route: 065
     Dates: start: 202207
  6. GABAPENTIN [Suspect]
     Active Substance: GABAPENTIN
     Indication: Product used for unknown indication
     Dosage: 300 MG
     Route: 065
  7. CAPECITABINE [Suspect]
     Active Substance: CAPECITABINE
     Indication: Product used for unknown indication
     Dosage: UNK (3 IN  THE MORNING AND 3 IN THE AFTERNOON)
     Route: 065

REACTIONS (21)
  - Metastases to breast [Unknown]
  - Taste disorder [Recovering/Resolving]
  - Dysgeusia [Recovering/Resolving]
  - Osteoarthritis [Not Recovered/Not Resolved]
  - Inflammation [Not Recovered/Not Resolved]
  - Tendonitis [Not Recovered/Not Resolved]
  - Limb discomfort [Unknown]
  - Feeling abnormal [Recovering/Resolving]
  - Muscle spasms [Unknown]
  - Pain [Unknown]
  - Peripheral swelling [Not Recovered/Not Resolved]
  - Abdominal pain upper [Recovering/Resolving]
  - Appetite disorder [Unknown]
  - Injury [Unknown]
  - Weight decreased [Unknown]
  - Immune system disorder [Unknown]
  - Infection [Unknown]
  - Decreased appetite [Recovering/Resolving]
  - Haemoglobin decreased [Unknown]
  - Blood creatinine increased [Unknown]
  - Drug ineffective [Unknown]

NARRATIVE: CASE EVENT DATE: 20220704
